FAERS Safety Report 9420012 (Version 1)
Quarter: 2013Q3

REPORT INFORMATION
  Report Type: Spontaneous
  Country: US (occurrence: US)
  Receive Date: 20130725
  Receipt Date: 20130725
  Transmission Date: 20140515
  Serious: Yes (Death)
  Sender: FDA-Public Use
  Company Number: US-BAYER-2013-087896

PATIENT
  Age: 45 Year
  Sex: Female
  Weight: 106.58 kg

DRUGS (12)
  1. YASMIN [Suspect]
     Indication: CONTRACEPTION
  2. YASMIN [Suspect]
     Indication: MENSTRUAL CYCLE MANAGEMENT
  3. HYDROCODONE/ACETAMINOPHEN [Concomitant]
     Dosage: UNK
  4. PROMETHAZINE [Concomitant]
     Dosage: UNK
  5. FENTANYL [Concomitant]
     Dosage: UNK
  6. PROPOFOL [Concomitant]
     Dosage: UNK
  7. MORPHINE [Concomitant]
     Dosage: UNK
  8. TORADOL [Concomitant]
     Dosage: UNK
  9. ZOFRAN [Concomitant]
     Dosage: UNK
  10. ANCEF [Concomitant]
     Dosage: UNK
  11. REGLAN [Concomitant]
     Dosage: UNK
  12. DILAUDID [Concomitant]
     Dosage: UNK
     Dates: start: 20080717

REACTIONS (1)
  - Pulmonary embolism [Fatal]
